FAERS Safety Report 4721987-3 (Version None)
Quarter: 2005Q3

REPORT INFORMATION
  Report Type: 
  Country: None (occurrence: None)
  Receive Date: 20050720
  Receipt Date: 20050713
  Transmission Date: 20060218
  Serious: Yes (Hospitalization)
  Sender: FDA-Public Use
  Company Number: 2005-130430-NL

PATIENT
  Age: 58 Year
  Sex: Female

DRUGS (4)
  1. DEXAMETHASONE [Suspect]
     Indication: VOMITING
     Dosage: 4 MG BID
  2. DOCETAXEL [Suspect]
     Indication: OESOPHAGEAL CANCER METASTATIC
     Dosage: 75 MG/M2
  3. CISPLATIN [Suspect]
     Indication: OESOPHAGEAL CANCER METASTATIC
     Dosage: 75 MG/M2
  4. FLUOROURACIL [Suspect]
     Indication: OESOPHAGEAL CANCER METASTATIC
     Dosage: 750 MG QD

REACTIONS (4)
  - INTESTINAL ISCHAEMIA [None]
  - LARGE INTESTINE PERFORATION [None]
  - PERITONITIS [None]
  - WHITE BLOOD CELL COUNT INCREASED [None]
